FAERS Safety Report 10170799 (Version 2)
Quarter: 2014Q2

REPORT INFORMATION
  Report Type: Report from Study
  Country: DE (occurrence: DE)
  Receive Date: 20140514
  Receipt Date: 20140520
  Transmission Date: 20141212
  Serious: Yes (Hospitalization)
  Sender: FDA-Public Use
  Company Number: DE-ROCHE-1398787

PATIENT
  Age: 55 Year
  Sex: Female
  Weight: 56 kg

DRUGS (12)
  1. RITUXIMAB [Suspect]
     Indication: B-CELL LYMPHOMA
     Dosage: DATE OF LAST DOSE PRIOR TO SAE: 20/JAN/2014
     Route: 042
     Dates: start: 20110221, end: 20140317
  2. BENDAMUSTINE [Suspect]
     Indication: B-CELL LYMPHOMA
     Route: 042
     Dates: start: 20110221, end: 20110830
  3. ARCOXIA [Concomitant]
     Route: 065
     Dates: start: 20130315
  4. AMPHO MORONAL [Concomitant]
     Route: 065
     Dates: start: 20130429
  5. NORSPAN PATCH [Concomitant]
     Route: 065
     Dates: start: 20130909
  6. MCP-BETA [Concomitant]
     Route: 065
  7. PANTOPRAZOLE [Concomitant]
     Route: 065
     Dates: start: 20130924
  8. PANTOPRAZOLE [Concomitant]
     Route: 065
  9. KATADOLON [Concomitant]
     Route: 065
     Dates: start: 20130924
  10. INDOMETHACIN [Concomitant]
     Route: 065
  11. INTRATECT [Concomitant]
     Route: 065
     Dates: start: 20140306
  12. FENTANYL PATCH [Concomitant]
     Route: 065
     Dates: start: 20140506

REACTIONS (1)
  - Psoriatic arthropathy [Not Recovered/Not Resolved]
